FAERS Safety Report 5186796-2 (Version None)
Quarter: 2006Q4

REPORT INFORMATION
  Report Type: 
  Country: None (occurrence: None)
  Receive Date: 20061213
  Receipt Date: 20060925
  Transmission Date: 20070319
  Serious: Yes (Death)
  Sender: FDA-Public Use
  Company Number: S06-USA-05100-01

PATIENT
  Age: 83 Year
  Sex: Male
  Weight: 69.4003 kg

DRUGS (14)
  1. CELEXA [Suspect]
     Indication: MAJOR DEPRESSION
     Dosage: 10 MG QD PO
     Route: 048
     Dates: start: 20060303, end: 20060306
  2. ELAVIL [Concomitant]
  3. ATIVAN [Concomitant]
  4. LEXAPRO [Concomitant]
  5. VASOTEC [Concomitant]
  6. ISOSORBIDE MONONITRATE [Concomitant]
  7. VANCOMYCIN [Concomitant]
  8. CYANOCOBALAMIN [Concomitant]
  9. FERROUS SULFATE TAB [Concomitant]
  10. MULTIVITAMIN WITH MINERALS [Concomitant]
  11. THIAMINE [Concomitant]
  12. BACID (LACTOBACILLUS ACIDOPHILUS) [Concomitant]
  13. ASPIRIN [Concomitant]
  14. MILK OF MAGNESIA [Concomitant]

REACTIONS (8)
  - BIPOLAR I DISORDER [None]
  - CARDIOMEGALY [None]
  - COMPLETED SUICIDE [None]
  - GENERAL PHYSICAL HEALTH DETERIORATION [None]
  - INJURY ASPHYXIATION [None]
  - INTENTIONAL SELF-INJURY [None]
  - MYOCARDIAL FIBROSIS [None]
  - NEPHROSCLEROSIS [None]
